FAERS Safety Report 22293436 (Version 3)
Quarter: 2023Q2

REPORT INFORMATION
  Report Type: Spontaneous
  Country: FR (occurrence: FR)
  Receive Date: 20230508
  Receipt Date: 20230530
  Transmission Date: 20230722
  Serious: Yes (Death, Hospitalization, Other)
  Sender: FDA-Public Use
  Company Number: FR-AUROBINDO-AUR-APL-2023-011794

PATIENT
  Age: 76 Year
  Sex: Female

DRUGS (7)
  1. ACYCLOVIR [Suspect]
     Active Substance: ACYCLOVIR
     Indication: Herpes simplex
     Dosage: 200 MILLIGRAM, 3 TIMES A DAY
     Route: 042
     Dates: start: 20220214, end: 20220221
  2. ACYCLOVIR [Suspect]
     Active Substance: ACYCLOVIR
     Dosage: 600 MILLIGRAM, 3 TIMES A DAY
     Route: 042
     Dates: start: 20220301
  3. VALGANCICLOVIR HYDROCHLORIDE [Concomitant]
     Active Substance: VALGANCICLOVIR HYDROCHLORIDE
     Indication: Cytomegalovirus infection
     Dosage: 450 MILLIGRAM, EVERY OTHER DAY (450 MILLIGRAM 48H)
     Route: 065
     Dates: start: 20211101
  4. VALGANCICLOVIR HYDROCHLORIDE [Concomitant]
     Active Substance: VALGANCICLOVIR HYDROCHLORIDE
     Indication: Antiviral prophylaxis
  5. FOSCARNET [Concomitant]
     Active Substance: FOSCARNET
     Indication: Herpes simplex
     Dosage: 4.5 MILLIGRAM, TWO TIMES A DAY
     Route: 042
     Dates: start: 20220317
  6. MYCOPHENOLIC ACID [Concomitant]
     Active Substance: MYCOPHENOLIC ACID
     Indication: Immunosuppression
     Dosage: 500 MILLIGRAM, TWO TIMES A DAY
     Route: 065
     Dates: start: 20211101
  7. TACROLIMUS [Concomitant]
     Active Substance: TACROLIMUS
     Indication: Immunosuppression
     Dosage: 5 MILLIGRAM
     Route: 065
     Dates: start: 20211101

REACTIONS (4)
  - Pathogen resistance [Fatal]
  - Herpes simplex [Fatal]
  - Drug resistance [Fatal]
  - Drug ineffective [Fatal]
